FAERS Safety Report 6642876-3 (Version None)
Quarter: 2010Q1

REPORT INFORMATION
  Report Type: 
  Country: None (occurrence: None)
  Receive Date: 20100319
  Receipt Date: 20100311
  Transmission Date: 20100710
  Serious: Yes (Other)
  Sender: FDA-Public Use
  Company Number: US-AMGEN-QUU398997

PATIENT
  Sex: Female

DRUGS (3)
  1. NPLATE [Suspect]
     Indication: IDIOPATHIC THROMBOCYTOPENIC PURPURA
     Dates: start: 20090331
  2. L-THYROXIN [Concomitant]
  3. ATENOLOL [Concomitant]

REACTIONS (3)
  - DEEP VEIN THROMBOSIS [None]
  - JOINT SWELLING [None]
  - LIMB INJURY [None]
